FAERS Safety Report 6525702-2 (Version None)
Quarter: 2009Q4

REPORT INFORMATION
  Report Type: 
  Country: None (occurrence: None)
  Receive Date: 20091222
  Receipt Date: 20091209
  Transmission Date: 20100525
  Serious: Yes (Hospitalization, Other)
  Sender: FDA-Public Use
  Company Number: 230447K09BRA

PATIENT
  Age: 42 Year
  Sex: Female

DRUGS (7)
  1. REBIF [Suspect]
     Indication: RELAPSING-REMITTING MULTIPLE SCLEROSIS
     Dosage: 44 MCG, 3 IN 1 WEEKS
     Dates: start: 20090629
  2. DORFLEX (DORFLEX) [Concomitant]
  3. MANTIDAN (AMANTADINE /00055901/) [Concomitant]
  4. ATENOLOL [Concomitant]
  5. INDAPAMIDE [Concomitant]
  6. SERTRALINE HCL [Concomitant]
  7. OXCARBAZEPINE [Concomitant]

REACTIONS (5)
  - DIZZINESS [None]
  - EPILEPSY [None]
  - GAIT DISTURBANCE [None]
  - HEADACHE [None]
  - PAIN IN EXTREMITY [None]
